FAERS Safety Report 9338249 (Version 2)
Quarter: 2013Q3

REPORT INFORMATION
  Report Type: Spontaneous
  Country: US (occurrence: US)
  Receive Date: 20130610
  Receipt Date: 20130719
  Transmission Date: 20140515
  Serious: No
  Sender: FDA-Public Use
  Company Number: US-B.I. PHARMACEUTICALS,INC./RIDGEFIELD-2013-BI-15680BP

PATIENT
  Age: 84 Year
  Sex: Female

DRUGS (5)
  1. SPIRIVA [Suspect]
     Indication: CHRONIC OBSTRUCTIVE PULMONARY DISEASE
     Dosage: 18 MCG
     Route: 055
     Dates: start: 2012
  2. SPIRIVA [Suspect]
     Indication: EMPHYSEMA
  3. LEVOTHYROXINE [Concomitant]
     Indication: THYROID DISORDER
     Route: 048
  4. RAMIPRIL [Concomitant]
     Indication: HYPERTENSION
     Route: 048
  5. CLARITIN [Concomitant]
     Indication: HYPERSENSITIVITY
     Route: 048
     Dates: start: 20130605

REACTIONS (6)
  - Dyspnoea [Not Recovered/Not Resolved]
  - Throat irritation [Not Recovered/Not Resolved]
  - Increased upper airway secretion [Not Recovered/Not Resolved]
  - Cough [Not Recovered/Not Resolved]
  - Product quality issue [Recovered/Resolved]
  - Product quality issue [Recovered/Resolved]
